FAERS Safety Report 8778457 (Version 1)
Quarter: 2012Q4

REPORT INFORMATION
  Report Type: 
  Country: FR (occurrence: FR)
  Receive Date: 20120912
  Receipt Date: 20120912
  Transmission Date: 20130627
  Serious: Yes (Hospitalization)
  Sender: FDA-Public Use
  Company Number: FR-VIIV HEALTHCARE LIMITED-B0827582A

PATIENT
  Sex: Male

DRUGS (7)
  1. ZIAGEN [Suspect]
     Indication: HIV INFECTION
     Dosage: 300MG Per day
     Route: 048
     Dates: start: 201201, end: 201201
  2. NORVIR [Suspect]
     Indication: HIV INFECTION
     Route: 048
     Dates: start: 201201, end: 201201
  3. PREZISTA [Suspect]
     Indication: HIV INFECTION
     Dosage: 300MG Per day
     Route: 048
     Dates: start: 201201, end: 201201
  4. VIREAD [Suspect]
     Indication: HIV INFECTION
     Dosage: 245MG Per day
     Route: 048
     Dates: start: 201201, end: 201201
  5. METFORMINE [Concomitant]
     Route: 048
  6. RENITEC [Concomitant]
     Route: 048
  7. VENTOLINE [Concomitant]
     Route: 055

REACTIONS (7)
  - Vomiting [Recovered/Resolved]
  - Nausea [Recovered/Resolved]
  - Generalised oedema [Recovered/Resolved]
  - Weight increased [Recovered/Resolved]
  - Skin test negative [Unknown]
  - Proteinuria [Recovered/Resolved]
  - Hypertension [Recovered/Resolved]
